FAERS Safety Report 8620870-0 (Version None)
Quarter: 2012Q3

REPORT INFORMATION
  Report Type: 
  Country: None (occurrence: None)
  Receive Date: 20120824
  Receipt Date: 20120821
  Transmission Date: 20120928
  Serious: Yes (Disabling)
  Sender: FDA-Public Use
  Company Number: FR-ROCHE-791944

PATIENT
  Sex: Female
  Weight: 79 kg

DRUGS (11)
  1. TRAMADOL HCL [Concomitant]
  2. AVASTIN [Suspect]
     Indication: GLIOBLASTOMA
     Dosage: LAST DOSE PRIOR TO SAE: 05 JULY 2011.
     Route: 042
  3. PREDNISOLONE [Suspect]
     Indication: PRODUCT USED FOR UNKNOWN INDICATION
     Route: 065
  4. NEXIUM [Concomitant]
  5. TEMOZOLOMIDE [Suspect]
     Indication: GLIOBLASTOMA
     Dosage: LAST DOSE: 27 DEC 2010
     Route: 048
  6. IRINOTECAN HCL [Suspect]
     Indication: GLIOBLASTOMA
     Dosage: LAST DOSE PRIOR TO SAE: 05 JULY 2011.
     Route: 042
  7. KEPPRA [Concomitant]
  8. LEXOMIL [Concomitant]
  9. CACIT D3 [Concomitant]
  10. ZOPICLONE [Concomitant]
  11. PREDNISONE TAB [Concomitant]

REACTIONS (1)
  - OSTEOPOROTIC FRACTURE [None]
